FAERS Safety Report 18252665 (Version 1)
Quarter: 2020Q3

REPORT INFORMATION
  Report Type: Spontaneous
  Country: US (occurrence: US)
  Receive Date: 20200910
  Receipt Date: 20200910
  Transmission Date: 20201103
  Serious: Yes (Other)
  Sender: FDA-Public Use
  Company Number: None

PATIENT
  Age: 59 Year
  Sex: Female

DRUGS (3)
  1. TRAVOPROST 0.004% OPTHALMIC [Concomitant]
     Dates: start: 20200723
  2. AIMOVIG [Suspect]
     Active Substance: ERENUMAB-AOOE
     Indication: MIGRAINE
     Dosage: ?          OTHER FREQUENCY:MONTHLY;?
     Route: 058
     Dates: start: 20190717
  3. ZOLMIPTRIPTAN [Concomitant]
     Active Substance: ZOLMITRIPTAN

REACTIONS (1)
  - Paraesthesia [None]

NARRATIVE: CASE EVENT DATE: 20200910
